FAERS Safety Report 23245774 (Version 1)
Quarter: 2023Q4

REPORT INFORMATION
  Report Type: Spontaneous
  Country: US (occurrence: US)
  Receive Date: 20231130
  Receipt Date: 20231130
  Transmission Date: 20240110
  Serious: Yes (Hospitalization, Other)
  Sender: FDA-Public Use
  Company Number: US-002147023-NVSC2023US224012

PATIENT
  Age: 72 Year

DRUGS (2)
  1. OCTREOTIDE [Suspect]
     Active Substance: OCTREOTIDE
     Indication: Product used for unknown indication
     Dosage: UNK, EVERY 1 MONTH
  2. AFINITOR [Suspect]
     Active Substance: EVEROLIMUS
     Indication: Carcinoid tumour of the stomach
     Dosage: 5 MILLIGRAM, TABLET, QD FOR THREE WEEKS, ONE WEEK OFF
     Route: 048

REACTIONS (10)
  - Diabetic ketoacidosis [Unknown]
  - Hepatic neoplasm [Unknown]
  - Breast mass [Unknown]
  - Hernia [Unknown]
  - Vomiting [Unknown]
  - Retching [Unknown]
  - Fatigue [Unknown]
  - Diarrhoea [Unknown]
  - Abdominal pain [Unknown]
  - Flatulence [Unknown]
